FAERS Safety Report 9658871 (Version 2)
Quarter: 2013Q4

REPORT INFORMATION
  Report Type: Spontaneous
  Country: US (occurrence: US)
  Receive Date: 20131030
  Receipt Date: 20131101
  Transmission Date: 20140711
  Serious: No
  Sender: FDA-Public Use
  Company Number: US-009507513-1309USA011140

PATIENT
  Age: 61 Year
  Sex: Female
  Weight: 68.27 kg

DRUGS (6)
  1. OXYTROL FOR WOMEN [Suspect]
     Indication: PRODUCT USED FOR UNKNOWN INDICATION
     Dosage: UNK, ONCE
     Route: 062
     Dates: start: 20130920
  2. PERCOCET [Suspect]
     Indication: PROCEDURAL PAIN
     Dosage: UNK UNK, UNKNOWN
     Route: 048
  3. LORAZEPAM [Suspect]
     Indication: DEPRESSION
     Dosage: UNK, UNKNOWN
     Route: 048
  4. TRAZODONE HYDROCHLORIDE [Suspect]
     Indication: DEPRESSION
     Dosage: UNK, UNKNOWN
     Route: 048
  5. TRAMADOL HYDROCHLORIDE [Suspect]
     Indication: PROCEDURAL PAIN
     Dosage: UNK, UNKNOWN
     Route: 048
  6. NAPROXEN [Concomitant]
     Indication: PROCEDURAL PAIN
     Dosage: UNK, UNKNOWN
     Route: 048

REACTIONS (3)
  - Dizziness [Recovered/Resolved]
  - Pruritus [Unknown]
  - Drug ineffective [Unknown]
